FAERS Safety Report 8029177-6 (Version None)
Quarter: 2012Q1

REPORT INFORMATION
  Report Type: 
  Country: None (occurrence: None)
  Receive Date: 20120106
  Receipt Date: 20120103
  Transmission Date: 20120608
  Serious: Yes (Other)
  Sender: FDA-Public Use
  Company Number: PHHY2011CA72144

PATIENT
  Sex: Female

DRUGS (2)
  1. ZOLEDRONOC ACID [Suspect]
     Indication: OSTEOPOROSIS
     Dosage: 5 MG, ANNUALLY
     Route: 042
     Dates: start: 20100901
  2. ZOLEDRONOC ACID [Suspect]
     Dosage: 5 MG, ANNUALLY
     Route: 042
     Dates: start: 20110831

REACTIONS (3)
  - BONE PAIN [None]
  - ARTHRALGIA [None]
  - BLADDER CANCER [None]
